FAERS Safety Report 17402062 (Version 1)
Quarter: 2020Q1

REPORT INFORMATION
  Report Type: Spontaneous
  Country: US (occurrence: US)
  Receive Date: 20200211
  Receipt Date: 20200211
  Transmission Date: 20200409
  Serious: Yes (Hospitalization, Other)
  Sender: FDA-Public Use
  Company Number: US-APOTEX-2020AP007340

PATIENT
  Age: 15 Month
  Sex: Male
  Weight: 11 kg

DRUGS (9)
  1. BUDESONIDE. [Concomitant]
     Active Substance: BUDESONIDE
     Indication: RESPIRATORY DISTRESS
  2. BUDESONIDE. [Concomitant]
     Active Substance: BUDESONIDE
     Indication: COUGH
     Dosage: NEBULIZED
     Route: 055
  3. CEFTRIAXONE. [Concomitant]
     Active Substance: CEFTRIAXONE
     Indication: PNEUMONIA
     Dosage: UNK
     Route: 042
  4. ALBUTEROL. [Suspect]
     Active Substance: ALBUTEROL
     Indication: COUGH
     Dosage: 1 DF, UNK (INALED)
     Route: 055
  5. ALBUTEROL. [Suspect]
     Active Substance: ALBUTEROL
     Indication: RESPIRATORY DISTRESS
     Dosage: 2.5 MG, Q.O.D., (5 DOSES, 12.5 MG TOTAL) (INALED)
     Route: 055
  6. ALBUTEROL. [Suspect]
     Active Substance: ALBUTEROL
     Dosage: INTERMITTENT DOSES (INALED)
     Route: 055
  7. METHYLPREDNISOLONE. [Concomitant]
     Active Substance: METHYLPREDNISOLONE
     Indication: RESPIRATORY DISTRESS
     Dosage: UNK
     Route: 042
  8. EPINEPHRINE. [Concomitant]
     Active Substance: EPINEPHRINE
     Indication: RESPIRATORY DISTRESS
     Dosage: UNK (INHALED)
     Route: 055
  9. LEVALBUTEROL                       /01419301/ [Concomitant]
     Active Substance: LEVALBUTEROL
     Indication: RESPIRATORY TRACT INFLAMMATION
     Dosage: UNK (INHALED)
     Route: 055

REACTIONS (1)
  - Supraventricular tachycardia [Recovered/Resolved]
